FAERS Safety Report 9768851 (Version 1)
Quarter: 2013Q4

REPORT INFORMATION
  Report Type: Spontaneous
  Country: JP (occurrence: JP)
  Receive Date: 20131218
  Receipt Date: 20131218
  Transmission Date: 20140711
  Serious: Yes (Other)
  Sender: FDA-Public Use
  Company Number: JP-ASTRAZENECA-2013SE91408

PATIENT
  Sex: Male

DRUGS (7)
  1. SEROQUEL [Suspect]
     Indication: SCHIZOPHRENIA
     Route: 048
  2. DOGMATYL [Suspect]
     Indication: SCHIZOPHRENIA
     Route: 048
     Dates: start: 20131206
  3. CONTOMIN [Concomitant]
     Indication: SCHIZOPHRENIA
     Route: 048
     Dates: start: 20131205
  4. RISPERDAL [Concomitant]
     Route: 048
  5. ABILIFY [Concomitant]
     Route: 048
  6. AKINETON [Concomitant]
     Route: 065
  7. ARTANE [Concomitant]
     Route: 048

REACTIONS (3)
  - Schizophrenia [Unknown]
  - Musculoskeletal stiffness [Unknown]
  - Drug ineffective [Unknown]
